FAERS Safety Report 7482320-X (Version None)
Quarter: 2011Q2

REPORT INFORMATION
  Report Type: 
  Country: None (occurrence: None)
  Receive Date: 20110516
  Receipt Date: 20110505
  Transmission Date: 20111010
  Serious: No
  Sender: FDA-Public Use
  Company Number: US-PFIZER INC-2011097078

PATIENT
  Sex: Male

DRUGS (4)
  1. XANAX [Suspect]
     Dosage: UNK
  2. VALIUM [Suspect]
     Dosage: UNK
  3. REMERON [Suspect]
  4. ATIVAN [Suspect]
     Dosage: UNK

REACTIONS (2)
  - TINNITUS [None]
  - ANXIETY [None]
